FAERS Safety Report 4329633-8 (Version None)
Quarter: 2004Q2

REPORT INFORMATION
  Report Type: 
  Country: None (occurrence: None)
  Receive Date: 20040401
  Receipt Date: 20040326
  Transmission Date: 20050107
  Serious: Yes (Death, Hospitalization)
  Sender: FDA-Public Use
  Company Number: PHRM2004FR01356

PATIENT
  Age: 44 Year
  Sex: Male

DRUGS (20)
  1. NEORAL [Suspect]
     Indication: BONE MARROW TRANSPLANT
     Dosage: 100 MG DAILY
     Route: 048
     Dates: start: 20031219, end: 20040222
  2. CYMEVAN [Suspect]
     Dosage: 900 MG DAILY
     Route: 042
     Dates: start: 20040121, end: 20040207
  3. OFLOCET [Suspect]
     Dosage: 400 MG DAILY
     Route: 042
     Dates: start: 20040129, end: 20040207
  4. CLAVENTIN [Suspect]
     Route: 042
     Dates: start: 20040121, end: 20040207
  5. CLAVENTIN [Suspect]
     Route: 042
     Dates: start: 20040211, end: 20040212
  6. VFEND [Suspect]
     Dosage: 400 MG DAILY
     Route: 042
     Dates: start: 20040105, end: 20040210
  7. CANCIDAS [Suspect]
     Dosage: 50 MG DAILY
     Route: 042
     Dates: start: 20040121, end: 20040207
  8. TAZOCILLINE [Concomitant]
     Dates: end: 20031226
  9. AMIKACIN [Concomitant]
     Dates: end: 20031226
  10. AMIKACIN [Concomitant]
     Dates: end: 20040128
  11. AMIKACIN [Concomitant]
     Dates: start: 20040207, end: 20040209
  12. ORACILLINE [Concomitant]
  13. TRIFLUCAN [Concomitant]
  14. VALACYCLOVIR HCL [Concomitant]
  15. VANCOMYCIN [Concomitant]
     Dosage: 2 G DAILY
     Dates: start: 20040129, end: 20040214
  16. AMBISOME [Concomitant]
     Dates: start: 20040204
  17. PIPERACILLIN [Concomitant]
     Dosage: 12 G DAILY
     Dates: start: 20040212
  18. SULFASALAZINE [Concomitant]
  19. FLUDARABINE PHOSPHATE [Concomitant]
  20. MISULBAN [Concomitant]

REACTIONS (18)
  - ACIDOSIS [None]
  - ACUTE PULMONARY OEDEMA [None]
  - AGGRESSION [None]
  - AGITATION [None]
  - ASPERGILLOSIS [None]
  - CONFUSIONAL STATE [None]
  - DEPRESSED LEVEL OF CONSCIOUSNESS [None]
  - ENCEPHALOPATHY [None]
  - LUNG DISORDER [None]
  - MULTI-ORGAN FAILURE [None]
  - MUSCLE RIGIDITY [None]
  - MYOCLONUS [None]
  - RENAL FAILURE [None]
  - RESPIRATORY DISTRESS [None]
  - RESPIRATORY SYNCYTIAL VIRUS INFECTION [None]
  - STAPHYLOCOCCAL INFECTION [None]
  - TORTICOLLIS [None]
  - TREMOR [None]
